FAERS Safety Report 17457554 (Version 7)
Quarter: 2022Q4

REPORT INFORMATION
  Report Type: Spontaneous
  Country: CA (occurrence: CA)
  Receive Date: 20200225
  Receipt Date: 20221027
  Transmission Date: 20230113
  Serious: Yes (Other)
  Sender: FDA-Public Use
  Company Number: CA-BRISTOL-MYERS SQUIBB COMPANY-BMS-2020-014461

PATIENT
  Age: 64 Year
  Sex: Female

DRUGS (24)
  1. ORENCIA [Suspect]
     Active Substance: ABATACEPT
     Indication: Rheumatoid arthritis
     Dosage: 1000 MILLIGRAM, QWK
     Route: 065
  2. ARAVA [Concomitant]
     Active Substance: LEFLUNOMIDE
     Indication: Rheumatoid arthritis
     Dosage: 20 MILLIGRAM, QD
     Route: 065
  3. CELEBREX [Concomitant]
     Active Substance: CELECOXIB
     Indication: Rheumatoid arthritis
     Route: 048
  4. CIMZIA [Concomitant]
     Active Substance: CERTOLIZUMAB PEGOL
     Indication: Rheumatoid arthritis
     Route: 058
  5. ENBREL [Concomitant]
     Active Substance: ETANERCEPT
     Indication: Rheumatoid arthritis
     Dosage: 22.5 MILLIGRAM, QD
     Route: 065
  6. ENBREL [Concomitant]
     Active Substance: ETANERCEPT
     Route: 058
  7. LEFLUNOMIDE [Concomitant]
     Active Substance: LEFLUNOMIDE
     Indication: Rheumatoid arthritis
     Dosage: 20 MILLIGRAM, QD
     Route: 048
  8. LEFLUNOMIDE [Concomitant]
     Active Substance: LEFLUNOMIDE
     Dosage: 20 MILLIGRAM
     Route: 065
  9. METHOTREXATE [Concomitant]
     Active Substance: METHOTREXATE
     Indication: Rheumatoid arthritis
     Dosage: 20 MILLIGRAM, QWK
     Route: 058
  10. METHOTREXATE [Concomitant]
     Active Substance: METHOTREXATE
     Dosage: 22.5 MILLIGRAM
     Route: 058
  11. METHOTREXATE [Concomitant]
     Active Substance: METHOTREXATE
     Route: 058
  12. PROLIA [Concomitant]
     Active Substance: DENOSUMAB
     Indication: Rheumatoid arthritis
     Dosage: UNK
     Route: 058
  13. CELECOXIB [Concomitant]
     Active Substance: CELECOXIB
     Indication: Rheumatoid arthritis
     Route: 048
  14. PREDNISOLONE SODIUM PHOSPHATE [Concomitant]
     Active Substance: PREDNISOLONE SODIUM PHOSPHATE
     Indication: Rheumatoid arthritis
     Route: 065
  15. PREDNISONE [Concomitant]
     Active Substance: PREDNISONE
     Indication: Rheumatoid arthritis
     Route: 065
  16. SULFASALAZINE [Concomitant]
     Active Substance: SULFASALAZINE
     Indication: Rheumatoid arthritis
     Dosage: 500 MILLIGRAM, QD
     Route: 048
  17. SULFASALAZINE [Concomitant]
     Active Substance: SULFASALAZINE
     Dosage: 500 MILLIGRAM
     Route: 048
  18. HUMIRA [Concomitant]
     Active Substance: ADALIMUMAB
     Indication: Product used for unknown indication
     Dosage: UNK
     Route: 058
  19. HUMIRA [Concomitant]
     Active Substance: ADALIMUMAB
     Route: 065
  20. RISEDRONATE SODIUM [Concomitant]
     Active Substance: RISEDRONATE SODIUM
     Indication: Rheumatoid arthritis
     Dosage: UNK
     Route: 065
  21. LEFLUNOMIDE [Concomitant]
     Active Substance: LEFLUNOMIDE
     Indication: Rheumatoid arthritis
     Dosage: 20 MILLIGRAM, QD
     Route: 048
  22. SIMPONI [Concomitant]
     Active Substance: GOLIMUMAB
     Indication: Rheumatoid arthritis
     Dosage: UNK
     Route: 058
  23. ACTEMRA [Concomitant]
     Active Substance: TOCILIZUMAB
     Indication: Rheumatoid arthritis
     Route: 065
  24. XELJANZ [Concomitant]
     Active Substance: TOFACITINIB CITRATE
     Indication: Rheumatoid arthritis
     Dosage: 5 MILLIGRAM, BID
     Route: 048

REACTIONS (18)
  - Arthralgia [Unknown]
  - Bedridden [Unknown]
  - Condition aggravated [Unknown]
  - Drug ineffective [Unknown]
  - Foot fracture [Unknown]
  - General physical health deterioration [Unknown]
  - Loss of personal independence in daily activities [Unknown]
  - Lower limb fracture [Unknown]
  - Mobility decreased [Unknown]
  - Osteoporosis [Unknown]
  - Rheumatoid arthritis [Unknown]
  - Therapeutic product effect incomplete [Unknown]
  - Abdominal discomfort [Unknown]
  - Diarrhoea haemorrhagic [Unknown]
  - Rash [Unknown]
  - Product use issue [Unknown]
  - Myocardial infarction [Unknown]
  - Anaphylactic shock [Unknown]
